FAERS Safety Report 17855915 (Version 1)
Quarter: 2020Q2

REPORT INFORMATION
  Report Type: Spontaneous
  Country: US (occurrence: US)
  Receive Date: 20200603
  Receipt Date: 20200603
  Transmission Date: 20200714
  Serious: No
  Sender: FDA-Public Use
  Company Number: US-BTG-201900094

PATIENT
  Age: 71 Year
  Sex: Male
  Weight: 86.3 kg

DRUGS (8)
  1. PEPCID [Concomitant]
     Active Substance: FAMOTIDINE
     Indication: PRODUCT USED FOR UNKNOWN INDICATION
     Dosage: 20 MG DAILY
     Route: 065
  2. LEUCOVORIN. [Concomitant]
     Active Substance: LEUCOVORIN
     Indication: TOXICITY TO VARIOUS AGENTS
     Dosage: 24 H AFTER THE START OF METHOTREXATE INFUSION Q 6HRS
     Route: 042
     Dates: start: 20190527, end: 20190527
  3. LEUCOVORIN. [Concomitant]
     Active Substance: LEUCOVORIN
     Indication: TOXICITY TO VARIOUS AGENTS
     Dosage: INCREASED FREQUENCY TO Q 3HRS 18 H AFTER INITIAL START OF LEUCOVORIN RESCURE.
     Route: 042
     Dates: start: 20190527
  4. DEXAMETHASONE. [Concomitant]
     Active Substance: DEXAMETHASONE
     Indication: CENTRAL NERVOUS SYSTEM LYMPHOMA
     Dosage: 4 MG BID
     Route: 065
  5. VORAXAZE [Suspect]
     Active Substance: GLUCARPIDASE
     Indication: TOXICITY TO VARIOUS AGENTS
     Dosage: 2ND DOSE
     Route: 065
     Dates: start: 20190529, end: 20190529
  6. VORAXAZE [Suspect]
     Active Substance: GLUCARPIDASE
     Indication: TOXICITY TO VARIOUS AGENTS
     Dosage: 1ST DOSE
     Route: 065
     Dates: start: 20190526, end: 20190526
  7. ATORVASTATIN [Concomitant]
     Active Substance: ATORVASTATIN
     Indication: HYPERLIPIDAEMIA
     Dosage: 10 MG QHS
     Route: 065
  8. METHOTREXATE. [Concomitant]
     Active Substance: METHOTREXATE
     Indication: CENTRAL NERVOUS SYSTEM LYMPHOMA
     Route: 065

REACTIONS (2)
  - Underdose [Unknown]
  - Laboratory test interference [Unknown]

NARRATIVE: CASE EVENT DATE: 20190526
